FAERS Safety Report 25031443 (Version 1)
Quarter: 2025Q1

REPORT INFORMATION
  Report Type: Spontaneous
  Country: US (occurrence: US)
  Receive Date: 20250303
  Receipt Date: 20250303
  Transmission Date: 20250409
  Serious: Yes (Hospitalization, Other)
  Sender: ROCHE
  Company Number: US-ROCHE-10000214615

PATIENT
  Sex: Male

DRUGS (3)
  1. BEVACIZUMAB [Suspect]
     Active Substance: BEVACIZUMAB
     Indication: Colorectal adenocarcinoma
     Route: 065
  2. FLUOROURACIL\IRINOTECAN\LEUCOVORIN\OXALIPLATIN [Suspect]
     Active Substance: FLUOROURACIL\IRINOTECAN\LEUCOVORIN\OXALIPLATIN
     Indication: Colorectal adenocarcinoma
     Route: 065
  3. PANITUMUMAB [Suspect]
     Active Substance: PANITUMUMAB
     Indication: Colorectal adenocarcinoma
     Route: 065

REACTIONS (13)
  - Cholangitis [Unknown]
  - Abdominal wall neoplasm [Unknown]
  - Platelet count decreased [Unknown]
  - Hydronephrosis [Unknown]
  - Blood bilirubin increased [Unknown]
  - Renal vein thrombosis [Unknown]
  - Metastases to soft tissue [Unknown]
  - Adenocarcinoma [Unknown]
  - Osteolysis [Unknown]
  - Metastases to lymph nodes [Unknown]
  - Metastases to pelvis [Unknown]
  - Metastases to lung [Unknown]
  - Rash [Unknown]

NARRATIVE: CASE EVENT DATE: 20200716
